FAERS Safety Report 16686454 (Version 1)
Quarter: 2019Q3

REPORT INFORMATION
  Report Type: Spontaneous
  Country: CA (occurrence: CA)
  Receive Date: 20190809
  Receipt Date: 20190809
  Transmission Date: 20191004
  Serious: Yes (Other)
  Sender: FDA-Public Use
  Company Number: CA-BEH-2019098603

PATIENT
  Age: 56 Year
  Sex: Female

DRUGS (10)
  1. PRIVIGEN [Suspect]
     Active Substance: HUMAN IMMUNOGLOBULIN G
     Dosage: 20 G, FRACTION 4/4
     Route: 065
     Dates: start: 20181205, end: 20181205
  2. PRIVIGEN [Suspect]
     Active Substance: HUMAN IMMUNOGLOBULIN G
     Dosage: 20 G, FRACTION 4/4
     Route: 065
     Dates: start: 20181205, end: 20181205
  3. PRIVIGEN [Suspect]
     Active Substance: HUMAN IMMUNOGLOBULIN G
     Dosage: 20 G, FRACTION 4/4
     Route: 065
     Dates: start: 20181207, end: 20181207
  4. PRIVIGEN [Suspect]
     Active Substance: HUMAN IMMUNOGLOBULIN G
     Dosage: 20 GRAM, TOT
     Route: 065
     Dates: start: 20181123, end: 20181123
  5. PRIVIGEN [Suspect]
     Active Substance: HUMAN IMMUNOGLOBULIN G
     Indication: GUILLAIN-BARRE SYNDROME
     Dosage: 20 G, FRACTION 4/4
     Route: 065
     Dates: start: 20181207, end: 20181207
  6. PRIVIGEN [Suspect]
     Active Substance: HUMAN IMMUNOGLOBULIN G
     Dosage: 20 G, FRACTION 4/4
     Route: 065
     Dates: start: 20181204, end: 20181204
  7. PRIVIGEN [Suspect]
     Active Substance: HUMAN IMMUNOGLOBULIN G
     Dosage: 20 G, FRACTION 4/4
     Route: 065
     Dates: start: 20181204, end: 20181204
  8. PRIVIGEN [Suspect]
     Active Substance: HUMAN IMMUNOGLOBULIN G
     Dosage: UNK
     Route: 065
     Dates: start: 20181123, end: 20181126
  9. PRIVIGEN [Suspect]
     Active Substance: HUMAN IMMUNOGLOBULIN G
     Dosage: 20 G, FRACTION 4/4
     Route: 065
     Dates: start: 20181206, end: 20181210
  10. PRIVIGEN [Suspect]
     Active Substance: HUMAN IMMUNOGLOBULIN G
     Dosage: 20 G, FRACTION 4/4
     Route: 065
     Dates: start: 20181206, end: 20181206

REACTIONS (11)
  - Haemolytic anaemia [Recovered/Resolved]
  - Neck pain [Recovered/Resolved]
  - Haemolysis [Recovered/Resolved]
  - Musculoskeletal pain [Recovered/Resolved]
  - Chills [Recovered/Resolved]
  - Tachycardia [Recovered/Resolved]
  - Anti A antibody positive [Recovered/Resolved]
  - Haemoglobin decreased [Recovered/Resolved]
  - Anaemia [Recovered/Resolved]
  - Hypertension [Recovered/Resolved]
  - Coombs test positive [Recovered/Resolved]

NARRATIVE: CASE EVENT DATE: 20181123
